FAERS Safety Report 20471782 (Version 2)
Quarter: 2022Q1

REPORT INFORMATION
  Report Type: Spontaneous
  Country: KR (occurrence: KR)
  Receive Date: 20220214
  Receipt Date: 20220307
  Transmission Date: 20220423
  Serious: Yes (Death)
  Sender: FDA-Public Use
  Company Number: KR-ELI_LILLY_AND_COMPANY-KR202202004000

PATIENT
  Age: 41 Year
  Sex: Male

DRUGS (2)
  1. CYRAMZA [Suspect]
     Active Substance: RAMUCIRUMAB
     Indication: Product used for unknown indication
     Dosage: 500 MG, CYCLICAL (I CYCLE)
     Route: 042
     Dates: start: 20211227, end: 20211227
  2. CYRAMZA [Suspect]
     Active Substance: RAMUCIRUMAB
     Dosage: 500 MG, CYCLICAL (II CYCLE)
     Route: 042
     Dates: start: 20220114, end: 20220114

REACTIONS (2)
  - Death [Fatal]
  - Inappropriate schedule of product administration [Unknown]

NARRATIVE: CASE EVENT DATE: 20220114
